FAERS Safety Report 21694768 (Version 1)
Quarter: 2022Q4

REPORT INFORMATION
  Report Type: Spontaneous
  Country: US (occurrence: None)
  Receive Date: 20221206
  Receipt Date: 20221206
  Transmission Date: 20230113
  Serious: Yes (Other)
  Sender: FDA-Public Use
  Company Number: None

PATIENT
  Sex: Female

DRUGS (20)
  1. HUMIRA [Suspect]
     Active Substance: ADALIMUMAB
     Indication: Rheumatoid arthritis
     Dosage: 40MG/0.4ML SUBCUTANEOUS??INJECT 40 MG SUBCUTANEOUSLY (UNDER THE SKIN) ONCE EVERY 2 WEEKS IN THE ABDO
     Route: 058
     Dates: start: 20221021
  2. ALBUTEROL AER HFA [Concomitant]
  3. AZITHROMYCIN TAB [Concomitant]
  4. BUPROPN HCL TAB [Concomitant]
  5. BUSPIRONE TAB [Concomitant]
  6. CYCLOBENZAPR TAB [Concomitant]
  7. ENBREL [Concomitant]
     Active Substance: ETANERCEPT
  8. FLUOXETINE CAP [Concomitant]
  9. FOLIC ACID TAB [Concomitant]
  10. KENALOG-40 [Concomitant]
     Active Substance: TRIAMCINOLONE ACETONIDE
  11. LEVOTHYROXIN TAB [Concomitant]
  12. METHOTREXATE [Concomitant]
     Active Substance: METHOTREXATE
  13. ONDANSETRON TAB [Concomitant]
  14. PANTPRAZOLE TAB [Concomitant]
  15. PREDNISONE [Concomitant]
     Active Substance: PREDNISONE
  16. PROTONIX [Concomitant]
     Active Substance: PANTOPRAZOLE SODIUM
  17. SULFASALAZINE [Concomitant]
     Active Substance: SULFASALAZINE
  18. SYMBICORT AER [Concomitant]
  19. TRELEY AER [Concomitant]
  20. WELLBUTRIN TAB XL [Concomitant]

REACTIONS (2)
  - Lung neoplasm malignant [None]
  - Pain [None]
